FAERS Safety Report 5677963-X (Version None)
Quarter: 2008Q1

REPORT INFORMATION
  Report Type: 
  Country: None (occurrence: None)
  Receive Date: 20080319
  Receipt Date: 20080305
  Transmission Date: 20080703
  Serious: Yes (Hospitalization)
  Sender: FDA-Public Use
  Company Number: 8028807

PATIENT
  Age: 67 Year
  Sex: Male
  Weight: 88.9 kg

DRUGS (4)
  1. KEPPRA [Suspect]
  2. TEMODAR [Suspect]
     Indication: ASTROCYTOMA, LOW GRADE
     Dosage: 1600 MG /D PO
     Route: 048
     Dates: start: 20071031, end: 20071104
  3. TEMODAR [Suspect]
     Indication: ASTROCYTOMA, LOW GRADE
     Dosage: 240 MG /D PO
     Route: 048
     Dates: start: 20071217
  4. LAMICTAL [Suspect]

REACTIONS (12)
  - ANTICONVULSANT DRUG LEVEL DECREASED [None]
  - ANTICONVULSANT DRUG LEVEL INCREASED [None]
  - BLOOD CREATINE PHOSPHOKINASE INCREASED [None]
  - CONFUSIONAL STATE [None]
  - CONVULSION [None]
  - INAPPROPRIATE SCHEDULE OF DRUG ADMINISTRATION [None]
  - MALAISE [None]
  - MYOGLOBIN BLOOD INCREASED [None]
  - NUCLEAR MAGNETIC RESONANCE IMAGING ABNORMAL [None]
  - PLATELET COUNT DECREASED [None]
  - PNEUMONIA ASPIRATION [None]
  - VOMITING [None]
